FAERS Safety Report 13695078 (Version 1)
Quarter: 2017Q2

REPORT INFORMATION
  Report Type: Report from Study
  Country: JP (occurrence: JP)
  Receive Date: 20170627
  Receipt Date: 20170627
  Transmission Date: 20170830
  Serious: Yes (Hospitalization)
  Sender: FDA-Public Use
  Company Number: PHJP2017JP010971

PATIENT
  Age: 77 Year
  Sex: Male
  Weight: 61 kg

DRUGS (28)
  1. LULICON [Concomitant]
     Active Substance: LULICONAZOLE
     Dosage: UNK, QD
     Route: 062
     Dates: start: 20160126
  2. MOHRUS [Concomitant]
     Active Substance: KETOPROFEN
     Indication: ARTHRITIS
     Dosage: UNK, PRN
     Route: 062
     Dates: start: 20130614
  3. BLINDED NO TREATMENT RECEIVED [Suspect]
     Active Substance: INVESTIGATIONAL PRODUCT
     Indication: CARDIOVASCULAR EVENT PROPHYLAXIS
     Dosage: CODE NOT BROKEN
     Route: 058
     Dates: start: 20120615, end: 20170203
  4. LIPITOR [Concomitant]
     Active Substance: ATORVASTATIN CALCIUM
     Indication: LIPID METABOLISM DISORDER
     Dosage: 10 MG, QD
     Route: 048
     Dates: start: 20090208
  5. MONILAC [Concomitant]
     Active Substance: LACTULOSE
     Indication: CONSTIPATION
     Dosage: 10 ML, QD
     Route: 048
     Dates: start: 20131225, end: 20170328
  6. GLACTIV [Concomitant]
     Active Substance: SITAGLIPTIN
     Indication: DIABETES MELLITUS
     Dosage: 50 MG, QD
     Route: 048
     Dates: start: 20131216, end: 20170328
  7. PURSENNID [Concomitant]
     Active Substance: SENNOSIDES A AND B
     Indication: CONSTIPATION
     Dosage: 36 MG, QD
     Route: 048
     Dates: start: 20131223, end: 20170328
  8. PARIET [Concomitant]
     Active Substance: RABEPRAZOLE SODIUM
     Indication: GASTRITIS PROPHYLAXIS
     Dosage: 10 MG, QD
     Route: 048
     Dates: start: 20130905
  9. SUMILU [Concomitant]
     Active Substance: FELBINAC
     Indication: ARTHRITIS
     Dosage: UNK, PRN
     Route: 062
     Dates: start: 20160126
  10. SANCOBA [Concomitant]
     Active Substance: CYANOCOBALAMIN
     Indication: ASTHENOPIA
     Dosage: UNK UNK, PRN
     Route: 061
     Dates: start: 20150402
  11. BLINDED PLACEBO [Suspect]
     Active Substance: INVESTIGATIONAL PRODUCT
     Indication: CARDIOVASCULAR EVENT PROPHYLAXIS
     Dosage: CODE NOT BROKEN
     Route: 058
     Dates: start: 20120615, end: 20170203
  12. BAYASPIRIN [Concomitant]
     Active Substance: ASPIRIN
     Indication: THROMBOSIS PROPHYLAXIS
     Dosage: 100 MG, QD
     Route: 048
     Dates: start: 20090208
  13. ZYLORIC [Concomitant]
     Active Substance: ALLOPURINOL
     Indication: HYPERURICAEMIA
     Dosage: 100 MG, QD
     Route: 048
     Dates: start: 20131012, end: 20170328
  14. THYRADIN-S [Concomitant]
     Active Substance: LEVOTHYROXINE
     Indication: HYPOTHYROIDISM
     Dosage: 75 UG, QD
     Route: 048
     Dates: start: 20130508
  15. GLACTIV [Concomitant]
     Active Substance: SITAGLIPTIN
     Dosage: 50 MG, QD
     Route: 048
     Dates: start: 20170405
  16. FUROSEMIDE. [Concomitant]
     Active Substance: FUROSEMIDE
     Indication: OEDEMA PERIPHERAL
     Dosage: 40 MG, QD
     Route: 048
     Dates: start: 20170211
  17. FULMETA [Concomitant]
     Active Substance: MOMETASONE
     Indication: ECZEMA
     Dosage: UNK UNK, QD
     Route: 062
  18. ACZ885 [Suspect]
     Active Substance: CANAKINUMAB
     Indication: CARDIOVASCULAR EVENT PROPHYLAXIS
     Dosage: UNK
     Route: 058
     Dates: start: 20170323
  19. NAPAGELN [Concomitant]
     Active Substance: FELBINAC
     Indication: ARTHRITIS
     Dosage: UNK, PRN
     Route: 062
     Dates: start: 20160126
  20. ESFLURBIPROFENUM [Concomitant]
     Indication: OSTEOARTHRITIS
     Dosage: UNK
     Route: 062
     Dates: start: 20161203
  21. AZULENE SODIUM SULFONATE [Concomitant]
     Active Substance: SODIUM GUALENATE
     Indication: PRODUCT USED FOR UNKNOWN INDICATION
     Dosage: UNK
     Route: 065
  22. ACARDI [Concomitant]
     Indication: CARDIAC FAILURE CHRONIC
     Dosage: 1.25 MG, BID
     Route: 048
     Dates: start: 20170311, end: 20170401
  23. CHALDOL [Concomitant]
     Indication: CONSTIPATION
     Dosage: 1 DRP, PRN
     Route: 048
     Dates: start: 20170204
  24. ARTIST [Concomitant]
     Active Substance: CARVEDILOL
     Indication: ATRIAL FIBRILLATION
     Dosage: 5 MG, QD
     Route: 048
     Dates: start: 20170311, end: 20170328
  25. BLINDED ACZ885 [Suspect]
     Active Substance: CANAKINUMAB
     Indication: CARDIOVASCULAR EVENT PROPHYLAXIS
     Dosage: CODE NOT BROKEN
     Route: 058
     Dates: start: 20120615, end: 20170203
  26. WARFARIN [Concomitant]
     Active Substance: WARFARIN
     Indication: THROMBOSIS PROPHYLAXIS
     Dosage: 1 MG, QD
     Route: 048
     Dates: start: 20170311, end: 20170402
  27. LULICON [Concomitant]
     Active Substance: LULICONAZOLE
     Indication: TINEA PEDIS
     Dosage: UNK, QD
     Route: 062
     Dates: start: 20151030
  28. BECLOMETASONE PROPIONATE [Concomitant]
     Indication: PRODUCT USED FOR UNKNOWN INDICATION
     Dosage: UNK
     Route: 065

REACTIONS (2)
  - Cardiac failure chronic [Recovered/Resolved]
  - Respiratory tract infection [Unknown]

NARRATIVE: CASE EVENT DATE: 20170328
